FAERS Safety Report 8202673-4 (Version None)
Quarter: 2012Q1

REPORT INFORMATION
  Report Type: 
  Country: None (occurrence: None)
  Receive Date: 20120312
  Receipt Date: 20120306
  Transmission Date: 20120608
  Serious: Yes (Other)
  Sender: FDA-Public Use
  Company Number: AU-JNJFOC-20120206298

PATIENT
  Age: 64 Year
  Sex: Male

DRUGS (12)
  1. AMANTADINE HCL [Concomitant]
     Indication: PARKINSON'S DISEASE
     Route: 045
  2. TRAMADOL HCL [Suspect]
     Indication: ANALGESIC THERAPY
     Route: 065
  3. MIDAZOLAM [Concomitant]
     Indication: ANAESTHESIA
     Route: 065
  4. ROCURONIUM BROMIDE [Concomitant]
     Indication: HYPOTONIA
     Route: 065
  5. FENTANYL CITRATE [Suspect]
     Indication: ANAESTHESIA
     Route: 065
  6. PROPOFOL [Suspect]
     Indication: ANAESTHESIA
     Route: 065
  7. PARECOXIB SODIUM [Concomitant]
     Indication: ANALGESIC THERAPY
     Route: 065
  8. CLONIDINE [Concomitant]
     Indication: PAIN
     Route: 065
  9. DESFLURANE [Suspect]
     Indication: ANAESTHESIA
     Dosage: 1 MINIMUM ALVEOLAR CONCENTRATION IN THE BEACH-CHAIR POSITION
     Route: 065
  10. MORPHINE [Suspect]
     Indication: ANALGESIC THERAPY
     Route: 065
  11. ACETAMINOPHEN [Concomitant]
     Indication: ANALGESIC THERAPY
     Route: 065
  12. SINEMET [Concomitant]
     Indication: PARKINSON'S DISEASE
     Dosage: LEVODOPA 250 MG/CARBIDOPA 25 MG,
     Route: 045

REACTIONS (1)
  - PARKINSON'S DISEASE [None]
